FAERS Safety Report 16979488 (Version 2)
Quarter: 2019Q4

REPORT INFORMATION
  Report Type: Spontaneous
  Country: IT (occurrence: IT)
  Receive Date: 20191031
  Receipt Date: 20191125
  Transmission Date: 20200122
  Serious: Yes (Hospitalization, Other)
  Sender: FDA-Public Use
  Company Number: IT-SA-2019SA295999

PATIENT
  Age: 84 Year
  Sex: Male

DRUGS (1)
  1. IRBESARTAN. [Suspect]
     Active Substance: IRBESARTAN
     Dosage: UNK UNK, UNK
     Route: 065

REACTIONS (7)
  - Myocardial infarction [Recovering/Resolving]
  - Dizziness [Recovering/Resolving]
  - Urine output increased [Recovering/Resolving]
  - Genital erythema [Not Recovered/Not Resolved]
  - Testis discomfort [Recovering/Resolving]
  - Penis disorder [Recovering/Resolving]
  - Genital burning sensation [Not Recovered/Not Resolved]
